FAERS Safety Report 6341119-8 (Version None)
Quarter: 2009Q3

REPORT INFORMATION
  Report Type: 
  Country: None (occurrence: None)
  Receive Date: 20090904
  Receipt Date: 20090311
  Transmission Date: 20100115
  Serious: No
  Sender: FDA-Public Use
  Company Number: A0683913A

PATIENT
  Sex: Male
  Weight: 113.6 kg

DRUGS (15)
  1. REQUIP [Suspect]
     Indication: PARKINSON'S DISEASE
     Dosage: 3MG THREE TIMES PER DAY
     Route: 048
     Dates: start: 19971117, end: 20050101
  2. SINEMET [Concomitant]
     Dates: start: 19950101
  3. COMTAN [Concomitant]
  4. ATENOLOL [Concomitant]
  5. LIPITOR [Concomitant]
  6. ASPIRIN [Concomitant]
  7. LORAZEPAM [Concomitant]
     Dosage: 2MG AS REQUIRED
  8. SEROQUEL [Concomitant]
  9. SINEMET CR [Concomitant]
     Route: 048
  10. POTASSIUM CHLORIDE [Concomitant]
  11. SINGULAIR [Concomitant]
  12. ACIPHEX [Concomitant]
  13. CLONAZEPAM [Concomitant]
  14. COGENTIN [Concomitant]
  15. AMBIEN [Concomitant]

REACTIONS (5)
  - DRUG EFFECT DECREASED [None]
  - HEADACHE [None]
  - MALAISE [None]
  - MARITAL PROBLEM [None]
  - PATHOLOGICAL GAMBLING [None]
